FAERS Safety Report 5483969-6 (Version None)
Quarter: 2007Q4

REPORT INFORMATION
  Report Type: 
  Country: None (occurrence: None)
  Receive Date: 20071010
  Receipt Date: 20071010
  Transmission Date: 20080405
  Serious: Yes (Life-Threatening, Hospitalization, Disabling)
  Sender: FDA-Public Use
  Company Number: None

PATIENT
  Age: 52 Year
  Sex: Female
  Weight: 79.3795 kg

DRUGS (1)
  1. VERSED [Suspect]
     Indication: SURGERY
     Dosage: 8 MG 4 DOSES OF 2MG IV
     Route: 042
     Dates: start: 20070615, end: 20070616

REACTIONS (8)
  - AGGRESSION [None]
  - AMNESIA [None]
  - ANGER [None]
  - HOSTILITY [None]
  - POST PROCEDURAL COMPLICATION [None]
  - SIMILAR REACTION ON PREVIOUS EXPOSURE TO DRUG [None]
  - SUICIDAL IDEATION [None]
  - SUICIDE ATTEMPT [None]
